FAERS Safety Report 5413836-5 (Version None)
Quarter: 2007Q3

REPORT INFORMATION
  Report Type: 
  Country: None (occurrence: None)
  Receive Date: 20070814
  Receipt Date: 20070614
  Transmission Date: 20080115
  Serious: Yes (Hospitalization)
  Sender: FDA-Public Use
  Company Number: US-BRISTOL-MYERS SQUIBB COMPANY-13649629

PATIENT
  Age: 61 Year
  Sex: Female

DRUGS (7)
  1. REYATAZ [Suspect]
     Indication: HIV INFECTION
     Route: 048
     Dates: start: 20050801, end: 20060301
  2. METHOTREXATE [Concomitant]
  3. RITONAVIR [Concomitant]
     Indication: HIV INFECTION
     Route: 048
  4. FOLIC ACID [Concomitant]
  5. PREDNISONE TAB [Concomitant]
  6. TRIAMTERENE AND HYDROCHLOROTHIAZIDE [Concomitant]
  7. TRUVADA [Concomitant]
     Indication: HIV INFECTION
     Route: 048

REACTIONS (1)
  - HYPERGLYCAEMIA [None]
